FAERS Safety Report 5529534-3 (Version None)
Quarter: 2007Q4

REPORT INFORMATION
  Report Type: 
  Country: None (occurrence: None)
  Receive Date: 20071129
  Receipt Date: 20071121
  Transmission Date: 20080405
  Serious: Yes (Death)
  Sender: FDA-Public Use
  Company Number: IN-BAXTER-2007BH008990

PATIENT
  Age: 28 Year
  Sex: Male
  Weight: 49 kg

DRUGS (5)
  1. DIANEAL [Suspect]
     Indication: PERITONEAL DIALYSIS
     Route: 033
     Dates: start: 20070727, end: 20071109
  2. ARKAMIN [Concomitant]
     Indication: DRUG USE FOR UNKNOWN INDICATION
     Route: 065
     Dates: start: 20030101
  3. LASIX [Concomitant]
     Indication: DRUG USE FOR UNKNOWN INDICATION
     Route: 065
     Dates: start: 20070701
  4. CALCIUM SUPPLEMENT [Concomitant]
     Indication: DRUG USE FOR UNKNOWN INDICATION
     Route: 065
     Dates: start: 20070701
  5. DULCOLAX [Concomitant]
     Indication: DRUG USE FOR UNKNOWN INDICATION
     Route: 065
     Dates: start: 20070701

REACTIONS (4)
  - CARDIAC ARREST [None]
  - DIZZINESS [None]
  - HYPOTENSION [None]
  - VOMITING [None]
